FAERS Safety Report 5315223-7 (Version None)
Quarter: 2007Q2

REPORT INFORMATION
  Report Type: 
  Country: None (occurrence: None)
  Receive Date: 20070502
  Receipt Date: 20070420
  Transmission Date: 20071010
  Serious: Yes (Other)
  Sender: FDA-Public Use
  Company Number: JP-MERCK-0704USA05706

PATIENT
  Age: 51 Year
  Sex: Female

DRUGS (6)
  1. SINGULAIR [Suspect]
     Indication: ASTHMA
     Route: 048
     Dates: start: 20020101, end: 20070419
  2. QVAR 40 [Concomitant]
     Indication: ASTHMA
  3. PREDNISOLONE [Suspect]
     Indication: ASTHMA
     Route: 048
  4. ANTIMICROBIAL (UNSPECIFIED) [Concomitant]
     Indication: NASOPHARYNGITIS
     Route: 048
  5. [THERAPY UNSPECIFIED] [Concomitant]
     Indication: NASOPHARYNGITIS
     Route: 048
  6. PREDNISOLONE [Suspect]
     Indication: NASOPHARYNGITIS
     Route: 065

REACTIONS (1)
  - ALLERGIC GRANULOMATOUS ANGIITIS [None]
